FAERS Safety Report 13488514 (Version 1)
Quarter: 2017Q2

REPORT INFORMATION
  Report Type: Spontaneous
  Country: US (occurrence: US)
  Receive Date: 20170426
  Receipt Date: 20170426
  Transmission Date: 20170830
  Serious: Yes (Hospitalization)
  Sender: FDA-Public Use
  Company Number: None

PATIENT
  Age: 39 Year
  Sex: Female
  Weight: 63.05 kg

DRUGS (19)
  1. TYLENOL [Concomitant]
     Active Substance: ACETAMINOPHEN
  2. DILAUDID [Concomitant]
     Active Substance: HYDROMORPHONE HYDROCHLORIDE
  3. SENNOSIDES (SENNA) [Concomitant]
  4. DECADRON [Concomitant]
     Active Substance: DEXAMETHASONE
  5. KEPPRA [Concomitant]
     Active Substance: LEVETIRACETAM
  6. ZOFRAN [Concomitant]
     Active Substance: ONDANSETRON HYDROCHLORIDE
  7. TENEX [Concomitant]
     Active Substance: GUANFACINE HYDROCHLORIDE
  8. CHOLECALCIFEROL (VITAMIN D3) [Concomitant]
  9. DONEPEZIL (ARICEPT) [Concomitant]
  10. SYNTHROID [Concomitant]
     Active Substance: LEVOTHYROXINE SODIUM
  11. APIXABAN [Suspect]
     Active Substance: APIXABAN
     Indication: EMBOLISM VENOUS
     Route: 048
     Dates: start: 20170301
  12. DRONABINOL (MARINOL) [Concomitant]
  13. CYMBALTA [Concomitant]
     Active Substance: DULOXETINE HYDROCHLORIDE
  14. ALCLOMETASONE (ACLOVATE) [Concomitant]
  15. CLINDAMYCIN (CLEOCIN T) [Concomitant]
  16. OSIMERTINIB MESYLATE (TAGRISSO) [Concomitant]
  17. ALLOPURINOL (ZYLOPRIM) [Concomitant]
  18. LORAZEPAM (ATIVAN) [Concomitant]
  19. QUETIAPINE (SEROQUEL) [Concomitant]

REACTIONS (1)
  - Back pain [None]

NARRATIVE: CASE EVENT DATE: 20170425
